FAERS Safety Report 23405418 (Version 1)
Quarter: 2024Q1

REPORT INFORMATION
  Report Type: Spontaneous
  Country: US (occurrence: None)
  Receive Date: 20240112
  Receipt Date: 20240112
  Transmission Date: 20240410
  Serious: Yes (Hospitalization)
  Sender: FDA-Public Use
  Company Number: None

PATIENT
  Age: 61 Year
  Sex: Female
  Weight: 83.9 kg

DRUGS (3)
  1. OZEMPIC [Suspect]
     Active Substance: SEMAGLUTIDE
     Dosage: OTHER FREQUENCY : WEEKLY;?
     Route: 058
     Dates: start: 20230401, end: 20231229
  2. amlodipne 5 mg daily [Concomitant]
  3. hydrochlorthiazide 12.5 mg daily [Concomitant]

REACTIONS (2)
  - Abdominal pain [None]
  - Hypophagia [None]

NARRATIVE: CASE EVENT DATE: 20240104
